FAERS Safety Report 18646847 (Version 1)
Quarter: 2020Q4

REPORT INFORMATION
  Report Type: Other
  Country: US (occurrence: US)
  Receive Date: 20201221
  Receipt Date: 20201221
  Transmission Date: 20210114
  Serious: No
  Sender: FDA-Public Use
  Company Number: US-ACORDA-ACO_166439_2020

PATIENT
  Sex: Male

DRUGS (2)
  1. INBRIJA [Suspect]
     Active Substance: LEVODOPA
     Indication: PARKINSON^S DISEASE
  2. INBRIJA [Suspect]
     Active Substance: LEVODOPA
     Indication: ON AND OFF PHENOMENON
     Dosage: 84 MILLIGRAM, AS NEEDED, NOT EXCEEDING 5 DOSES IN 1 DAY
     Dates: start: 20200319

REACTIONS (4)
  - Dyskinesia [Not Recovered/Not Resolved]
  - Parkinson^s disease [Unknown]
  - Gait disturbance [Unknown]
  - Therapy cessation [Unknown]
